FAERS Safety Report 6181888-3 (Version None)
Quarter: 2009Q2

REPORT INFORMATION
  Report Type: 
  Country: None (occurrence: None)
  Receive Date: 20090506
  Receipt Date: 20090427
  Transmission Date: 20091009
  Serious: Yes (Hospitalization, Other)
  Sender: FDA-Public Use
  Company Number: US-MERCK-0808USA00195

PATIENT
  Age: 75 Year
  Sex: Female

DRUGS (5)
  1. VYTORIN [Suspect]
     Route: 048
     Dates: start: 20040101, end: 20071001
  2. TARCEVA [Suspect]
     Indication: LUNG NEOPLASM MALIGNANT
     Route: 048
     Dates: start: 20070901, end: 20071019
  3. ASPIRIN [Concomitant]
     Route: 048
  4. ATENOLOL [Concomitant]
     Route: 048
  5. NORVASC [Concomitant]
     Route: 065

REACTIONS (4)
  - DRUG INTERACTION [None]
  - HEPATOTOXICITY [None]
  - LUNG NEOPLASM MALIGNANT [None]
  - RHABDOMYOLYSIS [None]
